FAERS Safety Report 4943185-0 (Version None)
Quarter: 2006Q1

REPORT INFORMATION
  Report Type: 
  Country: None (occurrence: None)
  Receive Date: 20060314
  Receipt Date: 20000413
  Transmission Date: 20060701
  Serious: Yes (Hospitalization)
  Sender: FDA-Public Use
  Company Number: US-MERCK-0603USA01886

PATIENT
  Age: 65 Year
  Sex: Female
  Weight: 93 kg

DRUGS (1)
  1. VIOXX [Suspect]
     Indication: ARTHRITIS
     Route: 048
     Dates: start: 20001128, end: 20020531

REACTIONS (4)
  - BRAIN STEM ISCHAEMIA [None]
  - JOINT INJURY [None]
  - KNEE ARTHROPLASTY [None]
  - ROTATOR CUFF SYNDROME [None]
